FAERS Safety Report 5875577-X (Version None)
Quarter: 2008Q3

REPORT INFORMATION
  Report Type: 
  Country: None (occurrence: None)
  Receive Date: 20080909
  Receipt Date: 20080826
  Transmission Date: 20090109
  Serious: Yes (Other)
  Sender: FDA-Public Use
  Company Number: US-ELI_LILLY_AND_COMPANY-US200808005396

PATIENT
  Sex: Male

DRUGS (5)
  1. HUMULIN 70/30 [Suspect]
     Dates: start: 19960101
  2. METFORMIN [Concomitant]
  3. ALTACE [Concomitant]
  4. EFFEXOR [Concomitant]
  5. ANDROGEL [Concomitant]
     Dates: start: 19420101

REACTIONS (4)
  - BLOOD GLUCOSE INCREASED [None]
  - CHRONIC OBSTRUCTIVE PULMONARY DISEASE [None]
  - LEUKAEMIA [None]
  - RESPIRATORY DISORDER [None]
